FAERS Safety Report 16903241 (Version 3)
Quarter: 2021Q1

REPORT INFORMATION
  Report Type: Report from Study
  Country: GB (occurrence: GB)
  Receive Date: 20191010
  Receipt Date: 20210104
  Transmission Date: 20210419
  Serious: Yes (Death, Hospitalization, Other)
  Sender: FDA-Public Use
  Company Number: GB-MYLANLABS-2019M1092605

PATIENT
  Age: 79 Year
  Sex: Female

DRUGS (19)
  1. LOPERAMIDE [Concomitant]
     Active Substance: LOPERAMIDE
     Indication: DIARRHOEA
     Dosage: 8 MILLIGRAM, QD
     Route: 048
     Dates: start: 20120531, end: 20151216
  2. TAMOXIFEN [Concomitant]
     Active Substance: TAMOXIFEN
     Dosage: EVERY DAY
     Route: 048
     Dates: start: 20121012, end: 20151022
  3. TAMOXIFEN [Suspect]
     Active Substance: TAMOXIFEN
     Indication: BREAST CANCER METASTATIC
     Dosage: 20 MILLIGRAM, QD
     Route: 048
     Dates: start: 20150708, end: 20151216
  4. DENOSUMAB [Suspect]
     Active Substance: DENOSUMAB
     Dosage: 120 MILLIGRAM, MONTHLY
     Route: 058
     Dates: start: 20150826, end: 20150826
  5. DENOSUMAB [Suspect]
     Active Substance: DENOSUMAB
     Indication: BREAST CANCER METASTATIC
     Dosage: 120 MILLIGRAM, CYCLE (3 WEEK, 1 CYCLE)
     Route: 058
     Dates: start: 20150819, end: 20150819
  6. ZOLEDRONIC ACID [Concomitant]
     Active Substance: ZOLEDRONIC ACID
     Dosage: 3.5 MILLIGRAM, MONTHLY
     Route: 042
     Dates: start: 20150713, end: 20150803
  7. CHLORPHENIRAMINE                   /00072501/ [Concomitant]
     Active Substance: CHLORPHENIRAMINE
     Dosage: 4 MILLIGRAM, PRN (AS NEEDED)
     Route: 048
     Dates: start: 20151021, end: 20151216
  8. PARACETAMOL [Concomitant]
     Active Substance: ACETAMINOPHEN
     Dosage: 1 GRAM, PRN (AS NEEDED)
     Route: 048
     Dates: start: 201506, end: 20151216
  9. LOSARTAN POTASSIUM. [Concomitant]
     Active Substance: LOSARTAN POTASSIUM
     Dosage: 50 MILLIGRAM, QD
     Route: 048
     Dates: end: 20151216
  10. LACTULOSE. [Concomitant]
     Active Substance: LACTULOSE
     Dosage: 10 MILLILITER, PRN (AS NEEDED)
     Route: 048
     Dates: start: 20151021, end: 20151216
  11. ORAMORPH [Concomitant]
     Active Substance: MORPHINE SULFATE
     Dosage: 5 MILLIGRAM (SOLUTION (FOUR HOURLY))
     Route: 048
  12. BUSCOPAN [Concomitant]
     Active Substance: BUTYLSCOPOLAMINE BROMIDE
     Dosage: 80 MILLIGRAM, QD
     Route: 048
     Dates: start: 20150902, end: 20151216
  13. TRAMADOL HYDROCHLORIDE. [Concomitant]
     Active Substance: TRAMADOL HYDROCHLORIDE
     Dosage: 50 MILLIGRAM, PRN (AS NEEDED)
     Route: 048
     Dates: start: 201506, end: 20151216
  14. DOMPERIDONE [Concomitant]
     Active Substance: DOMPERIDONE
     Dosage: 10 MILLIGRAM, PRN
     Route: 048
     Dates: start: 201506, end: 20151216
  15. ENSURE [Concomitant]
     Active Substance: AMINO ACIDS\DEXTROSE\ELECTROLYTES NOS\SOYBEAN OIL\VITAMINS
     Dosage: 1 U, SOLUTION
     Route: 048
     Dates: start: 20151021, end: 20151216
  16. OXYCODONE [Concomitant]
     Active Substance: OXYCODONE
     Dosage: 20 MILLIGRAM, QD
     Route: 048
     Dates: start: 20151021, end: 20151216
  17. RANITIDINE. [Concomitant]
     Active Substance: RANITIDINE
     Dosage: EVERY DAY
     Route: 048
     Dates: start: 201506, end: 20151216
  18. SENNA                              /00142201/ [Concomitant]
     Active Substance: SENNA LEAF
     Dosage: 15 MILLIGRAM
     Route: 048
     Dates: start: 20150902, end: 20151216
  19. CLARITHROMYCIN. [Concomitant]
     Active Substance: CLARITHROMYCIN
     Indication: SKIN INFECTION
     Dosage: 500 MILLIGRAM, QD
     Route: 048
     Dates: start: 20120921, end: 20151027

REACTIONS (15)
  - Pulmonary embolism [Recovered/Resolved]
  - Nausea [Unknown]
  - Influenza like illness [Recovered/Resolved]
  - Fall [Unknown]
  - Diverticulitis [Recovered/Resolved]
  - Insomnia [Recovered/Resolved]
  - Pain in extremity [Unknown]
  - Pain [Recovered/Resolved]
  - Fatigue [Recovered/Resolved]
  - Death [Fatal]
  - Confusional state [Recovered/Resolved]
  - Decreased appetite [Unknown]
  - Atrial fibrillation [Unknown]
  - Vomiting [Not Recovered/Not Resolved]
  - Pneumonia [Recovered/Resolved]

NARRATIVE: CASE EVENT DATE: 20150819
